FAERS Safety Report 7770894-0 (Version None)
Quarter: 2011Q3

REPORT INFORMATION
  Report Type: 
  Country: None (occurrence: None)
  Receive Date: 20110922
  Receipt Date: 20100303
  Transmission Date: 20111222
  Serious: Yes (Hospitalization)
  Sender: FDA-Public Use
  Company Number: US-ASTRAZENECA-2009SE25529

PATIENT
  Sex: Male

DRUGS (4)
  1. HYDROXYZINE [Concomitant]
     Route: 048
     Dates: start: 20030210
  2. SEROQUEL [Suspect]
     Route: 048
     Dates: start: 20030109
  3. GUAIFENESIN [Concomitant]
     Route: 048
     Dates: start: 20030210
  4. SERTRALINE HYDROCHLORIDE [Concomitant]
     Dosage: 50 MG TAKE ONE AND HALF EVERY DAY
     Route: 048
     Dates: start: 20030109

REACTIONS (2)
  - DIABETES MELLITUS [None]
  - DIABETIC KETOACIDOSIS [None]
